FAERS Safety Report 25826871 (Version 2)
Quarter: 2025Q4

REPORT INFORMATION
  Report Type: Spontaneous
  Country: US (occurrence: US)
  Receive Date: 20250920
  Receipt Date: 20251024
  Transmission Date: 20260117
  Serious: No
  Sender: TOLMAR
  Company Number: US-Tolmar-TLM-2025-06153

PATIENT

DRUGS (2)
  1. ELIGARD [Suspect]
     Active Substance: LEUPROLIDE ACETATE
     Indication: Prostate cancer
     Dosage: DOSE WAS NOT ADMINISTERED?SERIAL NUMBER: 8769721193822?GLOBAL TRADE ITEM NUMBER (GTIN): 003629352271
  2. DEVICE [Suspect]
     Active Substance: DEVICE
     Indication: Prostate cancer
     Dosage: SERIAL NUMBER: 8769721193822?GLOBAL TRADE ITEM NUMBER (GTIN): 00362935227106?EXPIRATION DATES: DEC-2

REACTIONS (2)
  - Product selection error [Unknown]
  - Intercepted product administration error [Unknown]
